FAERS Safety Report 8665035 (Version 2)
Quarter: 2012Q4

REPORT INFORMATION
  Report Type: 
  Country: BR (occurrence: BR)
  Receive Date: 20120716
  Receipt Date: 20121019
  Transmission Date: 20130627
  Serious: Yes (Other)
  Sender: FDA-Public Use
  Company Number: BR-BRISTOL-MYERS SQUIBB COMPANY-16753139

PATIENT
  Age: 69 Year
  Sex: Female

DRUGS (4)
  1. GLIFAGE XR [Suspect]
     Indication: DIABETES MELLITUS
     Dosage: TABS
     Route: 048
     Dates: start: 20120430, end: 20120527
  2. PANTOPRAZOLE [Concomitant]
  3. EUTHYROX [Concomitant]
     Indication: HYPOTHYROIDISM
  4. DIAMICRON [Concomitant]

REACTIONS (6)
  - Blood pressure increased [Recovered/Resolved]
  - Confusional state [Recovering/Resolving]
  - Tremor [Recovering/Resolving]
  - Lactose intolerance [Recovered/Resolved]
  - Distractibility [Unknown]
  - Memory impairment [Unknown]
